FAERS Safety Report 10417953 (Version 1)
Quarter: 2014Q3

REPORT INFORMATION
  Report Type: Spontaneous
  Country: US (occurrence: None)
  Receive Date: 20140828
  Receipt Date: 20140828
  Transmission Date: 20150326
  Serious: Yes (Hospitalization)
  Sender: FDA-Public Use
  Company Number: None

PATIENT
  Age: 67 Year
  Sex: Male
  Weight: 96.8 kg

DRUGS (1)
  1. GLIPIZIDE. [Suspect]
     Active Substance: GLIPIZIDE
     Indication: DIABETES MELLITUS
     Dosage: 5 MG, EVERY DAY, PO
     Route: 048
     Dates: start: 20140307, end: 20140720

REACTIONS (3)
  - Confusional state [None]
  - Sedation [None]
  - Hypoglycaemia [None]

NARRATIVE: CASE EVENT DATE: 20140720
